FAERS Safety Report 16788692 (Version 1)
Quarter: 2019Q3

REPORT INFORMATION
  Report Type: Spontaneous
  Country: FR (occurrence: FR)
  Receive Date: 20190910
  Receipt Date: 20190910
  Transmission Date: 20191005
  Serious: Yes (Other)
  Sender: FDA-Public Use
  Company Number: FR-SA-2019SA211466

PATIENT
  Age: 35 Year
  Sex: Female
  Weight: 78 kg

DRUGS (1)
  1. LOVENOX [Suspect]
     Active Substance: ENOXAPARIN SODIUM
     Indication: POSTPARTUM STATE
     Dosage: 1 DF, QD
     Route: 065

REACTIONS (3)
  - Menorrhagia [Recovered/Resolved]
  - Abdominal pain upper [Recovered/Resolved]
  - Rectal haemorrhage [Recovered/Resolved]

NARRATIVE: CASE EVENT DATE: 201908
